FAERS Safety Report 6237084-4 (Version None)
Quarter: 2009Q2

REPORT INFORMATION
  Report Type: 
  Country: None (occurrence: None)
  Receive Date: 20090619
  Receipt Date: 20090505
  Transmission Date: 20091009
  Serious: No
  Sender: FDA-Public Use
  Company Number: US-ASTRAZENECA-2009UW08153

PATIENT
  Age: 79 Year
  Sex: Female
  Weight: 57.5 kg

DRUGS (6)
  1. SYMBICORT [Suspect]
     Indication: ASTHMA
     Route: 055
     Dates: start: 20090330, end: 20090330
  2. ALBUTEROL [Concomitant]
     Indication: ASTHMA
  3. GLUCOSAMINE [Concomitant]
     Indication: ROUTINE HEALTH MAINTENANCE
  4. CALCIUM [Concomitant]
     Indication: ROUTINE HEALTH MAINTENANCE
  5. VITAMIN D [Concomitant]
     Indication: ROUTINE HEALTH MAINTENANCE
  6. MULTI-VITAMINS [Concomitant]
     Indication: ROUTINE HEALTH MAINTENANCE

REACTIONS (3)
  - ANXIETY [None]
  - FEELING JITTERY [None]
  - HEART RATE INCREASED [None]
